FAERS Safety Report 25289177 (Version 2)
Quarter: 2025Q2

REPORT INFORMATION
  Report Type: Spontaneous
  Country: US (occurrence: US)
  Receive Date: 20250509
  Receipt Date: 20250509
  Transmission Date: 20250716
  Serious: Yes (Other)
  Sender: AMGEN
  Company Number: US-AMGEN-USASP2025089162

PATIENT
  Age: 65 Year
  Sex: Male

DRUGS (3)
  1. ROMIPLOSTIM [Suspect]
     Active Substance: ROMIPLOSTIM
     Indication: Immune thrombocytopenia
     Route: 065
  2. HUMAN IMMUNOGLOBULIN G [Concomitant]
     Active Substance: HUMAN IMMUNOGLOBULIN G
     Route: 065
  3. ASPIRIN [Concomitant]
     Active Substance: ASPIRIN
     Indication: Platelet count increased
     Route: 065

REACTIONS (9)
  - Pulmonary oedema [Unknown]
  - Transfusion-related circulatory overload [Unknown]
  - Intra-abdominal haemorrhage [Recovered/Resolved]
  - Drug ineffective [Unknown]
  - Mobility decreased [Unknown]
  - Wound secretion [Unknown]
  - Splenomegaly [Unknown]
  - Dyspnoea [Unknown]
  - Haemorrhage [Recovered/Resolved]
